FAERS Safety Report 10219296 (Version 1)
Quarter: 2014Q2

REPORT INFORMATION
  Report Type: Spontaneous
  Country: US (occurrence: None)
  Receive Date: 20140604
  Receipt Date: 20140604
  Transmission Date: 20141212
  Serious: Yes (Hospitalization)
  Sender: FDA-Public Use
  Company Number: None

PATIENT
  Age: 71 Year
  Sex: Male

DRUGS (4)
  1. ZYTIGA 250 MG [Suspect]
     Indication: METASTASIS
     Route: 048
     Dates: start: 20140424
  2. ZYTIGA 250 MG [Suspect]
     Indication: PROSTATE CANCER
     Route: 048
     Dates: start: 20140424
  3. ZYTIGA 250 MG [Suspect]
     Indication: BONE MARROW DISORDER
     Route: 048
     Dates: start: 20140424
  4. ZYTIGA 250 MG [Suspect]
     Indication: BONE CANCER
     Route: 048
     Dates: start: 20140424

REACTIONS (1)
  - Renal failure [None]
